FAERS Safety Report 8826869 (Version 3)
Quarter: 2012Q4

REPORT INFORMATION
  Report Type: 
  Country: US (occurrence: US)
  Receive Date: 20121005
  Receipt Date: 20121102
  Transmission Date: 20130627
  Serious: Yes (Hospitalization, Other)
  Sender: FDA-Public Use
  Company Number: US-ALEXION PHARMACEUTICALS INC.-A201201856

PATIENT
  Age: 25 Year
  Sex: Female
  Weight: 65.1 kg

DRUGS (3)
  1. SOLIRIS 300MG [Suspect]
     Indication: PAROXYSMAL NOCTURNAL HAEMOGLOBINURIA
     Dosage: 900 mg, q2w
     Route: 042
  2. BACTRIM [Suspect]
     Indication: URINARY TRACT INFECTION
     Dosage: UNK
     Dates: start: 20120913, end: 20120914
  3. PHENAZOPYRIDINE HYDROCHLORIDE [Suspect]
     Indication: URINARY TRACT INFECTION
     Dosage: UNK
     Dates: start: 20120913

REACTIONS (9)
  - Pyelonephritis [Recovered/Resolved]
  - Paroxysmal nocturnal haemoglobinuria [Recovered/Resolved]
  - Condition aggravated [Recovered/Resolved]
  - Urinary tract infection [Recovered/Resolved]
  - Anaemia [Recovered/Resolved]
  - Hypersensitivity [Recovered/Resolved]
  - Bundle branch block right [Recovered/Resolved]
  - Skin lesion [Not Recovered/Not Resolved]
  - Chest discomfort [Recovered/Resolved]
